FAERS Safety Report 15677308 (Version 1)
Quarter: 2018Q4

REPORT INFORMATION
  Report Type: Spontaneous
  Country: JP (occurrence: JP)
  Receive Date: 20181130
  Receipt Date: 20181130
  Transmission Date: 20190205
  Serious: Yes (Other)
  Sender: FDA-Public Use
  Company Number: JP-SA-2018SA184945

PATIENT
  Age: 52 Year
  Sex: Female

DRUGS (4)
  1. PROTOPIC [Concomitant]
     Active Substance: TACROLIMUS
     Indication: DERMATITIS ATOPIC
     Dosage: 10 G, QD
     Route: 065
  2. DUPIXENT [Suspect]
     Active Substance: DUPILUMAB
     Indication: DERMATITIS ATOPIC
     Dosage: UNK UNK, QOW
     Route: 058
     Dates: start: 20180612
  3. RUPAFIN [Concomitant]
     Active Substance: RUPATADINE FUMARATE
     Indication: DERMATITIS ATOPIC
     Dosage: 20 MG, QD
     Route: 048
     Dates: start: 20180206
  4. ATARAX [ALPRAZOLAM] [Concomitant]
     Active Substance: ALPRAZOLAM
     Indication: DERMATITIS ATOPIC
     Dosage: 10 MG, BID
     Route: 065

REACTIONS (3)
  - Conjunctivitis allergic [Recovering/Resolving]
  - Eye pruritus [Not Recovered/Not Resolved]
  - Conjunctival haemorrhage [Recovering/Resolving]

NARRATIVE: CASE EVENT DATE: 20180612
